FAERS Safety Report 6110806-9 (Version None)
Quarter: 2009Q1

REPORT INFORMATION
  Report Type: 
  Country: None (occurrence: None)
  Receive Date: 20090311
  Receipt Date: 20090304
  Transmission Date: 20090719
  Serious: Yes (Other)
  Sender: FDA-Public Use
  Company Number: US-JNJFOC-20090202630

PATIENT
  Sex: Female

DRUGS (6)
  1. RISPERDAL [Suspect]
     Indication: ANTIDEPRESSANT THERAPY
     Route: 048
  2. LEXAPRO [Suspect]
     Indication: ANTIDEPRESSANT THERAPY
     Route: 048
  3. WELLBUTRIN XL [Suspect]
     Indication: ANTIDEPRESSANT THERAPY
     Dosage: 450 (UNITS UNSPECIFIED) QD
     Route: 048
  4. SYNTHROID [Concomitant]
     Indication: HYPOTHYROIDISM
     Route: 048
  5. LITHIUM CARBONATE [Concomitant]
     Indication: DRUG USE FOR UNKNOWN INDICATION
     Dosage: 600 (UNITS UNSPECIFIED) BID
     Route: 065
  6. PROVIGIL [Concomitant]
     Indication: SEDATION
     Route: 065

REACTIONS (1)
  - DEAFNESS BILATERAL [None]
